FAERS Safety Report 12852405 (Version 1)
Quarter: 2016Q4

REPORT INFORMATION
  Report Type: Spontaneous
  Country: US (occurrence: US)
  Receive Date: 20161017
  Receipt Date: 20161017
  Transmission Date: 20170207
  Serious: Yes (Hospitalization)
  Sender: FDA-Public Use
  Company Number: None

PATIENT
  Age: 25 Year
  Sex: Female

DRUGS (1)
  1. APIDRA [Suspect]
     Active Substance: INSULIN GLULISINE
     Indication: PRODUCT USED FOR UNKNOWN INDICATION
     Dosage: ?          QUANTITY:/00 {DWARFS -- 1% E;?

REACTIONS (3)
  - Diabetic ketoacidosis [None]
  - Surgery [None]
  - Post procedural complication [None]

NARRATIVE: CASE EVENT DATE: 20160509
